FAERS Safety Report 23360081 (Version 1)
Quarter: 2024Q1

REPORT INFORMATION
  Report Type: Spontaneous
  Country: IT (occurrence: IT)
  Receive Date: 20240103
  Receipt Date: 20240103
  Transmission Date: 20240410
  Serious: Yes (Other)
  Sender: FDA-Public Use
  Company Number: IT-MINISAL02-960028

PATIENT
  Age: 67 Year
  Sex: Male
  Weight: 65 kg

DRUGS (4)
  1. LORAZEPAM [Suspect]
     Active Substance: LORAZEPAM
     Indication: Insomnia
     Dosage: 7.5 MILLIGRAM, TWO TIMES A DAY (1 HOUR AT 8 AM 2 HOURS AT 8 PM)
     Route: 048
     Dates: start: 20150103
  2. PROMAZINA [Suspect]
     Active Substance: PROMAZINE
     Indication: Product used for unknown indication
     Dosage: 10 GTT DROPS, (5-10 GTT IN THE EVENING AS PER PSYCHIATRIC INDICATION)
     Route: 048
     Dates: start: 2018
  3. PREGABALIN [Concomitant]
     Active Substance: PREGABALIN
     Indication: Polyneuropathy
     Dosage: 150 MILLIGRAM (FOR 2 FOR LOWER LIMB POLYNEUROPATHY)
     Route: 065
  4. GLECAPREVIR\PIBRENTASVIR [Concomitant]
     Active Substance: GLECAPREVIR\PIBRENTASVIR
     Indication: Product used for unknown indication
     Dosage: UNK
     Route: 065

REACTIONS (3)
  - Substance abuse [Recovered/Resolved with Sequelae]
  - Aggression [Recovered/Resolved with Sequelae]
  - Sopor [Recovered/Resolved with Sequelae]

NARRATIVE: CASE EVENT DATE: 20231127
